FAERS Safety Report 13157254 (Version 2)
Quarter: 2017Q1

REPORT INFORMATION
  Report Type: Report from Study
  Country: JP (occurrence: JP)
  Receive Date: 20170127
  Receipt Date: 20170217
  Transmission Date: 20170428
  Serious: Yes (Hospitalization)
  Sender: FDA-Public Use
  Company Number: JP-AMGEN-JPNSP2017013769

PATIENT
  Age: 57 Year
  Sex: Male

DRUGS (7)
  1. CINACALCET HCL [Suspect]
     Active Substance: CINACALCET HYDROCHLORIDE
     Dosage: 75 MG, QD
     Route: 048
     Dates: start: 20160509, end: 20160619
  2. CINACALCET HCL [Suspect]
     Active Substance: CINACALCET HYDROCHLORIDE
     Dosage: 75 MG, QD
     Route: 048
     Dates: start: 20160425, end: 20160501
  3. CINACALCET HCL [Suspect]
     Active Substance: CINACALCET HYDROCHLORIDE
     Dosage: 64.3 MG, QD
     Route: 048
     Dates: start: 20160502, end: 20160508
  4. CINACALCET HCL [Suspect]
     Active Substance: CINACALCET HYDROCHLORIDE
     Dosage: 75 MG, QD
     Route: 048
     Dates: start: 20160620, end: 20160626
  5. CINACALCET HCL [Suspect]
     Active Substance: CINACALCET HYDROCHLORIDE
     Indication: HYPERPARATHYROIDISM SECONDARY
     Dosage: 25 MG, QD
     Route: 048
     Dates: start: 20160314, end: 20160403
  6. CINACALCET HCL [Suspect]
     Active Substance: CINACALCET HYDROCHLORIDE
     Dosage: 50 MG, QD
     Route: 048
     Dates: start: 20160404, end: 20160424
  7. CINACALCET HCL [Suspect]
     Active Substance: CINACALCET HYDROCHLORIDE
     Dosage: 75 MG, QD
     Route: 048
     Dates: start: 20160620

REACTIONS (3)
  - Angioplasty [Recovered/Resolved]
  - Influenza [Recovered/Resolved]
  - Decreased appetite [Recovered/Resolved]

NARRATIVE: CASE EVENT DATE: 20160402
